FAERS Safety Report 6361011-2 (Version None)
Quarter: 2009Q3

REPORT INFORMATION
  Report Type: 
  Country: None (occurrence: None)
  Receive Date: 20090915
  Receipt Date: 20090915
  Transmission Date: 20100115
  Serious: Yes (Hospitalization)
  Sender: FDA-Public Use
  Company Number: None

PATIENT
  Sex: Female
  Weight: 78.4723 kg

DRUGS (1)
  1. CARISOPRODOL [Suspect]
     Indication: BACK PAIN
     Dosage: ONE TABLET 3 TIMES A DAY, ONCE
     Dates: start: 20090908, end: 20090908

REACTIONS (2)
  - ASTHENIA [None]
  - IMMOBILE [None]
